FAERS Safety Report 15881984 (Version 5)
Quarter: 2020Q4

REPORT INFORMATION
  Report Type: Report from Study
  Country: PT (occurrence: PT)
  Receive Date: 20190128
  Receipt Date: 20201001
  Transmission Date: 20210113
  Serious: Yes (Hospitalization)
  Sender: FDA-Public Use
  Company Number: PT-PFIZER INC-2019026020

PATIENT
  Age: 60 Year
  Sex: Female

DRUGS (11)
  1. PALBOCICLIB [Suspect]
     Active Substance: PALBOCICLIB
     Dosage: UNK
  2. TAMOXIFEN [Suspect]
     Active Substance: TAMOXIFEN
     Indication: BREAST CANCER
     Dosage: 20 MG, DAILY
     Route: 048
     Dates: start: 20180224
  3. INSULIN [Concomitant]
     Active Substance: INSULIN NOS
     Indication: DIABETES MELLITUS
     Dosage: 30 IU, DAILY
     Route: 058
  4. GLICLAZIDE [Concomitant]
     Active Substance: GLICLAZIDE
     Indication: DIABETES MELLITUS
     Dosage: 60 MG, 2X/DAY
     Route: 048
  5. ZOLEDRONIC ACID [Concomitant]
     Active Substance: ZOLEDRONIC ACID
     Indication: BREAST CANCER
     Dosage: UNK, CYCLIC (EVERY 6 MONTHS)
     Route: 042
     Dates: start: 20170822
  6. METFORMIN/SITAGLIPTIN [Concomitant]
     Active Substance: METFORMIN\SITAGLIPTIN
     Indication: DIABETES MELLITUS
     Dosage: UNK, DAILY (850/50 MG)
     Route: 048
  7. PALBOCICLIB [Suspect]
     Active Substance: PALBOCICLIB
     Indication: BREAST CANCER
     Dosage: 125 MG, 1X/DAY
     Route: 048
     Dates: start: 20171220
  8. PIOGLITAZONE. [Concomitant]
     Active Substance: PIOGLITAZONE
     Indication: DIABETES MELLITUS
     Dosage: 30 MG, DAILY
     Route: 048
  9. PALBOCICLIB [Suspect]
     Active Substance: PALBOCICLIB
     Dosage: UNK
  10. TELMISARTAN AND HYDROCHLOROTHIAZIDE [Concomitant]
     Active Substance: HYDROCHLOROTHIAZIDE\TELMISARTAN
     Indication: HYPERTENSION
     Dosage: UNK, DAILY (40/12.5 MG)
     Route: 048
  11. TELMISARTAN AND HYDROCHLOROTHIAZIDE [Concomitant]
     Active Substance: HYDROCHLOROTHIAZIDE\TELMISARTAN
     Indication: DIABETES MELLITUS

REACTIONS (1)
  - Deep vein thrombosis [Recovered/Resolved]

NARRATIVE: CASE EVENT DATE: 20190111
